FAERS Safety Report 5499051-8 (Version None)
Quarter: 2007Q4

REPORT INFORMATION
  Report Type: 
  Country: None (occurrence: None)
  Receive Date: 20071026
  Receipt Date: 20070523
  Transmission Date: 20080405
  Serious: No
  Sender: FDA-Public Use
  Company Number: A0652625A

PATIENT
  Age: 71 Year
  Sex: Female

DRUGS (9)
  1. ADVAIR DISKUS 100/50 [Suspect]
     Indication: CHRONIC OBSTRUCTIVE PULMONARY DISEASE
     Dosage: 1PUFF TWICE PER DAY
     Route: 055
  2. SINGULAIR [Concomitant]
  3. SPIRIVA [Concomitant]
  4. DOXYCILLIN [Concomitant]
  5. GLYBURIDE AND METFORMIN HCL [Concomitant]
  6. POTASSIUM CHLORIDE [Concomitant]
  7. LASIX [Concomitant]
  8. JANUVIA [Concomitant]
  9. PREDNISONE [Concomitant]

REACTIONS (4)
  - DRUG INEFFECTIVE [None]
  - DRY EYE [None]
  - DRY MOUTH [None]
  - VISION BLURRED [None]
